FAERS Safety Report 15036601 (Version 1)
Quarter: 2018Q2

REPORT INFORMATION
  Report Type: Spontaneous
  Country: GR (occurrence: GR)
  Receive Date: 20180620
  Receipt Date: 20180620
  Transmission Date: 20180711
  Serious: Yes (Disabling, Other)
  Sender: FDA-Public Use
  Company Number: GR-DSJP-DSE-2018-124246

PATIENT

DRUGS (2)
  1. PITAVA [Suspect]
     Active Substance: PITAVASTATIN
     Indication: HYPERLIPIDAEMIA
     Dosage: 1 OR 2 MG, QD (1)
     Route: 048
     Dates: start: 20170615
  2. OLMESARTAN MEDOXOMIL. [Suspect]
     Active Substance: OLMESARTAN MEDOXOMIL
     Indication: PRODUCT USED FOR UNKNOWN INDICATION
     Dosage: 20 MG
     Route: 048
     Dates: start: 20170615

REACTIONS (3)
  - Fatigue [Unknown]
  - Anxiety [Unknown]
  - Amyotrophic lateral sclerosis [Not Recovered/Not Resolved]

NARRATIVE: CASE EVENT DATE: 201708
